FAERS Safety Report 6837451-1 (Version None)
Quarter: 2010Q3

REPORT INFORMATION
  Report Type: 
  Country: None (occurrence: None)
  Receive Date: 20100713
  Receipt Date: 20100709
  Transmission Date: 20110219
  Serious: Yes (Disabling)
  Sender: FDA-Public Use
  Company Number: IT-MERCK-1007ITA00011

PATIENT
  Age: 73 Year
  Sex: Male

DRUGS (7)
  1. VYTORIN [Suspect]
     Indication: HYPERCHOLESTEROLAEMIA
     Route: 048
  2. CAPTOPRIL [Concomitant]
     Route: 065
  3. BISOPROLOL FUMARATE [Concomitant]
     Route: 065
  4. FINASTERIDE [Concomitant]
     Route: 065
  5. OMEGA-3 ACID ETHYL ESTERS [Concomitant]
     Route: 065
  6. GLIMEPIRIDE [Concomitant]
     Route: 065
  7. MESALAMINE [Concomitant]
     Route: 065

REACTIONS (1)
  - HAEMORRHAGE [None]
